FAERS Safety Report 9698032 (Version 1)
Quarter: 2013Q4

REPORT INFORMATION
  Report Type: Spontaneous
  Country: US (occurrence: None)
  Receive Date: 20131113
  Receipt Date: 20131113
  Transmission Date: 20140711
  Serious: Yes (Hospitalization)
  Sender: FDA-Public Use
  Company Number: 2010027052

PATIENT
  Age: 73 Year
  Sex: Female

DRUGS (4)
  1. PRIVIGEN [Suspect]
     Route: 042
     Dates: start: 20100317, end: 20100317
  2. ALLOPURINOL [Concomitant]
  3. IBUHEXAL /00109201/ (IBUPROFEN) [Concomitant]
  4. OTHER ANTIMYCOTICS FOR SYSTEMIC USE ( OTHER ANTIMYECOTICS FOR SYSTEMIC USE ) [Concomitant]

REACTIONS (4)
  - Surgery [None]
  - Headache [None]
  - Epistaxis [None]
  - Feeling cold [None]
